FAERS Safety Report 21908265 (Version 1)
Quarter: 2023Q1

REPORT INFORMATION
  Report Type: Spontaneous
  Country: US (occurrence: None)
  Receive Date: 20230124
  Receipt Date: 20230124
  Transmission Date: 20230418
  Serious: No
  Sender: FDA-Public Use
  Company Number: None

PATIENT
  Sex: Male

DRUGS (1)
  1. SKYRIZI [Suspect]
     Active Substance: RISANKIZUMAB-RZAA
     Indication: Psoriasis
     Dosage: 150MG SUB-Q??INJECT 1 PEN UNDER THE SKIN AT WEEK 0, WEEK 4, THEN EVERY 12 WEEKS THEREAFTER
     Route: 058
     Dates: start: 202301

REACTIONS (3)
  - Device defective [None]
  - Device leakage [None]
  - Drug dose omission by device [None]
